FAERS Safety Report 4950085-9 (Version None)
Quarter: 2006Q1

REPORT INFORMATION
  Report Type: 
  Country: None (occurrence: None)
  Receive Date: 20060322
  Receipt Date: 20060314
  Transmission Date: 20060701
  Serious: Yes (Hospitalization)
  Sender: FDA-Public Use
  Company Number: 2006CG00484

PATIENT
  Age: 74 Year
  Sex: Male
  Weight: 85 kg

DRUGS (11)
  1. OMEPRAZOLE [Suspect]
     Route: 048
     Dates: end: 20060204
  2. ZYVOXID [Suspect]
     Indication: STAPHYLOCOCCAL INFECTION
     Route: 048
     Dates: start: 20060111, end: 20060204
  3. TIENAM [Suspect]
     Indication: STAPHYLOCOCCAL INFECTION
     Dosage: 500 + 500 MG TID
     Route: 042
     Dates: start: 20060111, end: 20060204
  4. COLCHICINE [Suspect]
     Route: 048
     Dates: end: 20060204
  5. BUMETANIDE [Suspect]
     Indication: CARDIAC FAILURE
     Route: 048
     Dates: end: 20060204
  6. KREDEX [Suspect]
     Indication: CARDIAC FAILURE
     Route: 048
  7. ATACAND [Concomitant]
     Route: 048
  8. TAHOR [Concomitant]
  9. ALDACTONE [Concomitant]
  10. PLAVIX [Concomitant]
  11. ALLOPURINOL [Concomitant]

REACTIONS (14)
  - ABDOMINAL PAIN [None]
  - BLOOD CALCIUM DECREASED [None]
  - BLOOD CHLORIDE DECREASED [None]
  - BLOOD CREATININE INCREASED [None]
  - BLOOD PRESSURE FLUCTUATION [None]
  - BLOOD SODIUM DECREASED [None]
  - BLOOD UREA INCREASED [None]
  - BONE MARROW FAILURE [None]
  - DRUG TOXICITY [None]
  - HYPOGLYCAEMIA [None]
  - NORMOCHROMIC NORMOCYTIC ANAEMIA [None]
  - STAPHYLOCOCCAL INFECTION [None]
  - THROMBOCYTOPENIA [None]
  - VIRAL INFECTION [None]
